FAERS Safety Report 4453616-0 (Version None)
Quarter: 2004Q3

REPORT INFORMATION
  Report Type: 
  Country: None (occurrence: None)
  Receive Date: 20040920
  Receipt Date: 20040908
  Transmission Date: 20050211
  Serious: Yes (Other)
  Sender: FDA-Public Use
  Company Number: IT-BRISTOL-MYERS SQUIBB COMPANY-12697736

PATIENT
  Age: 64 Year
  Sex: Female

DRUGS (3)
  1. SELECTIN [Suspect]
     Route: 048
     Dates: start: 20040802, end: 20040903
  2. KARVEZIDE [Concomitant]
  3. GAVISCON [Concomitant]

REACTIONS (3)
  - LARYNGEAL OEDEMA [None]
  - PHARYNGITIS [None]
  - RHINITIS [None]
